FAERS Safety Report 4399422-7 (Version None)
Quarter: 2004Q3

REPORT INFORMATION
  Report Type: 
  Country: None (occurrence: None)
  Receive Date: 20040712
  Receipt Date: 20040706
  Transmission Date: 20050211
  Serious: Yes (Hospitalization)
  Sender: FDA-Public Use
  Company Number: 04-07-0967

PATIENT
  Age: 28 Year
  Sex: Female

DRUGS (6)
  1. CLOZAPINE [Suspect]
     Dosage: 400  MG BID ORAL
     Route: 048
     Dates: start: 19990801
  2. LITHIUM CARBONATE [Suspect]
     Indication: BIPOLAR DISORDER
     Dosage: 300 MG TID
     Dates: start: 19970101
  3. ZANTAC [Concomitant]
  4. HALOPERIDOL [Concomitant]
  5. GEODON [Concomitant]
  6. ATIVAN [Concomitant]

REACTIONS (1)
  - DRUG TOXICITY [None]
